FAERS Safety Report 9982349 (Version 2)
Quarter: 2014Q1

REPORT INFORMATION
  Report Type: Report from Study
  Country: US (occurrence: US)
  Receive Date: 20140307
  Receipt Date: 20140307
  Transmission Date: 20141002
  Serious: Yes (Other)
  Sender: FDA-Public Use
  Company Number: US-ABBVIE-12P-163-1022919-00

PATIENT
  Sex: Female

DRUGS (7)
  1. HUMIRA [Suspect]
     Indication: CROHN^S DISEASE
     Dates: start: 20051207
  2. HUMIRA [Suspect]
  3. HUMIRA [Suspect]
  4. HUMIRA [Suspect]
  5. HUMIRA [Suspect]
     Dosage: FOR 7.5 YEARS
     Dates: start: 2006
  6. UNKNOWN IMMUNOSUPPRESSANT [Concomitant]
     Indication: IMMUNOSUPPRESSANT DRUG THERAPY
  7. 6-MP [Concomitant]

REACTIONS (2)
  - Crohn^s disease [Not Recovered/Not Resolved]
  - Cholestasis of pregnancy [Unknown]
